FAERS Safety Report 7795513-9 (Version None)
Quarter: 2011Q4

REPORT INFORMATION
  Report Type: 
  Country: None (occurrence: None)
  Receive Date: 20111004
  Receipt Date: 20110201
  Transmission Date: 20120403
  Serious: No
  Sender: FDA-Public Use
  Company Number: US-BAYER-2011-011359

PATIENT
  Sex: Male

DRUGS (3)
  1. METHOTREXATE [Concomitant]
  2. PREDNISONE [Concomitant]
  3. LEVITRA [Suspect]
     Dosage: 10 MG, ONCE
     Route: 048
     Dates: start: 20110131

REACTIONS (3)
  - NASAL CONGESTION [None]
  - DRUG INEFFECTIVE [None]
  - FEELING HOT [None]
